FAERS Safety Report 10378724 (Version 3)
Quarter: 2014Q3

REPORT INFORMATION
  Report Type: Report from Study
  Country: US (occurrence: US)
  Receive Date: 20140812
  Receipt Date: 20140912
  Transmission Date: 20150326
  Serious: No
  Sender: FDA-Public Use
  Company Number: US-ACTELION-A-NJ2013-90138

PATIENT
  Age: 59 Year
  Sex: Female

DRUGS (6)
  1. VELETRI [Suspect]
     Active Substance: EPOPROSTENOL
     Indication: COR PULMONALE CHRONIC
     Dosage: 10 NG/KG, PER MIN
     Route: 042
     Dates: start: 20130925
  2. TYVASO [Concomitant]
     Active Substance: TREPROSTINIL
  3. TRACLEER [Suspect]
     Active Substance: BOSENTAN\BOSENTAN MONOHYDRATE
     Indication: COR PULMONALE CHRONIC
     Dosage: UNK
     Route: 048
  4. VELETRI [Suspect]
     Active Substance: EPOPROSTENOL
     Dosage: 6 NG/KG, PER MIN
     Route: 042
     Dates: start: 20130925, end: 20140710
  5. COUMADIN [Concomitant]
     Active Substance: WARFARIN SODIUM
  6. VELETRI [Suspect]
     Active Substance: EPOPROSTENOL
     Dosage: 25.2 NG/KG, UNK
     Route: 042

REACTIONS (11)
  - Catheter site pruritus [Unknown]
  - Diarrhoea [Unknown]
  - Skin ulcer [Unknown]
  - Catheter site cellulitis [Unknown]
  - Nausea [Unknown]
  - Erythema [Unknown]
  - Pain in extremity [Unknown]
  - Device related infection [Unknown]
  - Dyspnoea [Unknown]
  - Catheter site erythema [Unknown]
  - Headache [Unknown]

NARRATIVE: CASE EVENT DATE: 20140730
